FAERS Safety Report 5585557-X (Version None)
Quarter: 2008Q1

REPORT INFORMATION
  Report Type: 
  Country: None (occurrence: None)
  Receive Date: 20080109
  Receipt Date: 20080103
  Transmission Date: 20080703
  Serious: Yes (Other)
  Sender: FDA-Public Use
  Company Number: B0361066A

PATIENT
  Age: 29 Year
  Sex: Female

DRUGS (4)
  1. PAROXETINE HYDROCHLORIDE [Suspect]
     Route: 065
     Dates: start: 19950221, end: 20000101
  2. PAROXETINE HYDROCHLORIDE [Suspect]
     Route: 065
     Dates: end: 20000101
  3. AMITRIPTYLINE HCL [Concomitant]
     Route: 065
     Dates: start: 19941012, end: 20010820
  4. DIAZEPAM [Concomitant]
     Dates: start: 19990302

REACTIONS (18)
  - ABNORMAL DREAMS [None]
  - AGGRESSION [None]
  - ANGER [None]
  - DEREALISATION [None]
  - DIARRHOEA [None]
  - DISORIENTATION [None]
  - DISSOCIATION [None]
  - DISTURBANCE IN ATTENTION [None]
  - DIZZINESS [None]
  - DRUG WITHDRAWAL SYNDROME [None]
  - HYPERHIDROSIS [None]
  - INSOMNIA [None]
  - MUSCLE SPASMS [None]
  - NAUSEA [None]
  - PANIC ATTACK [None]
  - PARAESTHESIA [None]
  - VERTIGO [None]
  - WEIGHT INCREASED [None]
